FAERS Safety Report 8352989-6 (Version None)
Quarter: 2012Q2

REPORT INFORMATION
  Report Type: 
  Country: None (occurrence: None)
  Receive Date: 20120511
  Receipt Date: 20120430
  Transmission Date: 20120825
  Serious: Yes (Other)
  Sender: FDA-Public Use
  Company Number: GB-NOVOPROD-350719

PATIENT
  Age: 71 Year
  Sex: Male

DRUGS (7)
  1. HYDROCORTISONE [Concomitant]
  2. LEVOTHYROXINE SODIUM [Concomitant]
  3. NIFEDIPINE [Concomitant]
  4. SUSTANON                           /00593501/ [Concomitant]
  5. NORDITROPIN [Suspect]
     Indication: GROWTH HORMONE DEFICIENCY
     Dosage: 0.4 MG, QD
     Route: 058
     Dates: end: 20111018
  6. BENDROFLUMETHIAZIDE [Concomitant]
  7. ATENOLOL [Concomitant]

REACTIONS (1)
  - PITUITARY TUMOUR RECURRENT [None]
